FAERS Safety Report 5342482-7 (Version None)
Quarter: 2007Q2

REPORT INFORMATION
  Report Type: 
  Country: None (occurrence: None)
  Receive Date: 20070601
  Receipt Date: 20070523
  Transmission Date: 20071010
  Serious: Yes (Hospitalization)
  Sender: FDA-Public Use
  Company Number: GB-ABBOTT-07P-167-0369254-00

PATIENT
  Age: 30 Year
  Sex: Male

DRUGS (5)
  1. VALPROATE SODIUM [Suspect]
     Indication: SCHIZOAFFECTIVE DISORDER
     Route: 065
     Dates: start: 20060401
  2. RISPERIDONE [Suspect]
     Indication: SCHIZOAFFECTIVE DISORDER
     Route: 030
     Dates: start: 20060401
  3. RISPERIDONE [Suspect]
  4. LORAZEPAM [Suspect]
     Indication: AGITATION
     Dates: start: 20060401
  5. PIPOTIAZINE PALMITATE [Concomitant]
     Indication: SCHIZOAFFECTIVE DISORDER
     Dates: start: 20060401

REACTIONS (4)
  - MENTAL DISORDER [None]
  - PRURITUS [None]
  - RASH ERYTHEMATOUS [None]
  - VASCULITIS [None]
